FAERS Safety Report 7738507-1 (Version None)
Quarter: 2011Q3

REPORT INFORMATION
  Report Type: 
  Country: None (occurrence: None)
  Receive Date: 20110906
  Receipt Date: 20110823
  Transmission Date: 20111222
  Serious: Yes (Other)
  Sender: FDA-Public Use
  Company Number: 11-509

PATIENT
  Sex: Male
  Weight: 72.5755 kg

DRUGS (3)
  1. EMOLLIENTS + PROTECTIVES [Concomitant]
  2. NAPROXEN [Suspect]
     Indication: HEADACHE
     Dosage: 440MG; ONCE; ORAL
     Route: 048
     Dates: start: 20110101, end: 20110818
  3. STEROID ANTIBACTERIALS [Concomitant]

REACTIONS (5)
  - STAPHYLOCOCCAL INFECTION [None]
  - ECZEMA [None]
  - PRURITUS [None]
  - BLISTER [None]
  - DRUG INTOLERANCE [None]
